FAERS Safety Report 7026521-3 (Version None)
Quarter: 2010Q3

REPORT INFORMATION
  Report Type: 
  Country: None (occurrence: None)
  Receive Date: 20100929
  Receipt Date: 20100527
  Transmission Date: 20110219
  Serious: Yes (Other)
  Sender: FDA-Public Use
  Company Number: WAES 1009USA04850

PATIENT
  Age: 63 Year
  Sex: Female

DRUGS (2)
  1. FOSAMAX [Suspect]
     Indication: OSTEOPOROSIS
     Dosage: IV
     Route: 042
  2. INJ ZOLEDRONATE DISODIUM [Suspect]
     Indication: OSTEOPOROSIS
     Dosage: IV
     Route: 042

REACTIONS (2)
  - BONE FISTULA [None]
  - OSTEONECROSIS OF JAW [None]
